FAERS Safety Report 4526805-4 (Version None)
Quarter: 2004Q4

REPORT INFORMATION
  Report Type: 
  Country: None (occurrence: None)
  Receive Date: 20041213
  Receipt Date: 20041129
  Transmission Date: 20050328
  Serious: Yes (Hospitalization, Other)
  Sender: FDA-Public Use
  Company Number: 0400051EN0020P

PATIENT
  Age: 7 Year
  Sex: Male

DRUGS (3)
  1. ONCASPAR [Suspect]
     Indication: ACUTE LYMPHOCYTIC LEUKAEMIA
     Dosage: 2275 IU IM
     Route: 030
     Dates: start: 20041112, end: 20041112
  2. VINCRISTINE [Concomitant]
  3. DEXAMETHASONE [Concomitant]

REACTIONS (3)
  - BACTERAEMIA [None]
  - HYPERLIPIDAEMIA [None]
  - PYREXIA [None]
